FAERS Safety Report 21912534 (Version 4)
Quarter: 2023Q2

REPORT INFORMATION
  Report Type: Spontaneous
  Country: US (occurrence: US)
  Receive Date: 20230125
  Receipt Date: 20230425
  Transmission Date: 20230722
  Serious: Yes (Other)
  Sender: FDA-Public Use
  Company Number: US-ALLERGAN-2240849US

PATIENT
  Sex: Female
  Weight: 61.235 kg

DRUGS (5)
  1. BOTOX [Suspect]
     Active Substance: ONABOTULINUMTOXINA
     Indication: Migraine
     Dosage: UNK UNK, SINGLE
     Dates: start: 202210, end: 202210
  2. BOTOX [Suspect]
     Active Substance: ONABOTULINUMTOXINA
     Dosage: UNK UNK, SINGLE
     Dates: start: 202010, end: 202010
  3. UBRELVY [Concomitant]
     Active Substance: UBROGEPANT
     Indication: Migraine
     Dosage: 100 MG, 5 IN 1 WEEK
     Dates: start: 2021
  4. RESTASIS [Concomitant]
     Active Substance: CYCLOSPORINE
     Indication: Dry eye
  5. OXCARBAZEPINE [Concomitant]
     Active Substance: OXCARBAZEPINE
     Indication: Neuralgia

REACTIONS (23)
  - Cardiac failure [Recovering/Resolving]
  - Swelling face [Recovered/Resolved]
  - Fat tissue increased [Unknown]
  - Facial pain [Unknown]
  - Swelling [Recovered/Resolved]
  - Insomnia [Recovering/Resolving]
  - Hypoacusis [Recovering/Resolving]
  - Blood thyroid stimulating hormone increased [Recovering/Resolving]
  - Dyskinesia [Recovering/Resolving]
  - Heart rate decreased [Recovering/Resolving]
  - Blood calcium decreased [Recovering/Resolving]
  - Coeliac disease [Unknown]
  - Asthma [Recovering/Resolving]
  - Visual impairment [Recovered/Resolved]
  - Visual field defect [Recovered/Resolved]
  - Vitamin D decreased [Recovered/Resolved]
  - Memory impairment [Recovering/Resolving]
  - Asthenia [Recovering/Resolving]
  - Dizziness [Recovering/Resolving]
  - Strabismus [Recovered/Resolved]
  - Nausea [Recovering/Resolving]
  - Drug ineffective [Unknown]
  - Migraine [Recovering/Resolving]

NARRATIVE: CASE EVENT DATE: 20201001
